FAERS Safety Report 6441529-4 (Version None)
Quarter: 2009Q4

REPORT INFORMATION
  Report Type: 
  Country: None (occurrence: None)
  Receive Date: 20091112
  Receipt Date: 20091029
  Transmission Date: 20100525
  Serious: Yes (Other)
  Sender: FDA-Public Use
  Company Number: 232505J09USA

PATIENT
  Age: 39 Year
  Sex: Female

DRUGS (3)
  1. REBIF [Suspect]
     Indication: MULTIPLE SCLEROSIS
     Dosage: 44 MCG, 3 IN 1 WEEKS, SUBCUTANEOUS
     Route: 058
     Dates: start: 20080701
  2. BACLOFEN [Concomitant]
  3. IBUPROFEN [Concomitant]

REACTIONS (6)
  - ANGER [None]
  - CONDITION AGGRAVATED [None]
  - DEPRESSION [None]
  - LACERATION [None]
  - MULTIPLE SCLEROSIS [None]
  - SUICIDE ATTEMPT [None]
